FAERS Safety Report 24139624 (Version 1)
Quarter: 2024Q3

REPORT INFORMATION
  Report Type: Spontaneous
  Country: GB (occurrence: GB)
  Receive Date: 20240726
  Receipt Date: 20240726
  Transmission Date: 20241016
  Serious: Yes (Disabling, Other)
  Sender: AUROBINDO
  Company Number: GB-MHRA-MED-202407181820541080-BLPYH

PATIENT
  Age: 61 Year
  Sex: Male
  Weight: 85 kg

DRUGS (1)
  1. CIPROFLOXACIN [Suspect]
     Active Substance: CIPROFLOXACIN
     Indication: Antibiotic therapy
     Dosage: 50 MILLIGRAM, TWO TIMES A DAY
     Route: 065
     Dates: start: 20240628, end: 20240708

REACTIONS (2)
  - Joint noise [Not Recovered/Not Resolved]
  - Medication error [Unknown]

NARRATIVE: CASE EVENT DATE: 20240707
